FAERS Safety Report 8514719-4 (Version None)
Quarter: 2012Q3

REPORT INFORMATION
  Report Type: 
  Country: None (occurrence: None)
  Receive Date: 20120717
  Receipt Date: 20120711
  Transmission Date: 20120928
  Serious: Yes (Hospitalization, Other)
  Sender: FDA-Public Use
  Company Number: US-ACTELION-A-NJ2012-63327

PATIENT

DRUGS (2)
  1. ASPIRIN [Concomitant]
  2. TRACLEER [Suspect]
     Indication: PULMONARY ARTERIAL HYPERTENSION
     Dosage: UNK
     Route: 048

REACTIONS (9)
  - FLUID RETENTION [None]
  - HYPERSENSITIVITY [None]
  - ORAL SURGERY [None]
  - DYSPNOEA EXERTIONAL [None]
  - GLOSSODYNIA [None]
  - BLADDER DISORDER [None]
  - SOMNOLENCE [None]
  - ORAL DISORDER [None]
  - SWOLLEN TONGUE [None]
